FAERS Safety Report 5918341-5 (Version None)
Quarter: 2008Q4

REPORT INFORMATION
  Report Type: 
  Country: None (occurrence: None)
  Receive Date: 20081010
  Receipt Date: 20080930
  Transmission Date: 20090506
  Serious: Yes (Other)
  Sender: FDA-Public Use
  Company Number: SPV1-2008-00005

PATIENT
  Age: 20 Year
  Sex: Female
  Weight: 47.6 kg

DRUGS (3)
  1. LIALDA [Suspect]
     Indication: COLITIS ULCERATIVE
     Dosage: 2.4G, 1X/DAY;QD;ORAL
     Route: 048
     Dates: start: 20060101
  2. PRENATAL VITAMINS(ASCORBIC ACID, BIOTIN, MINERALS NOS) [Concomitant]
  3. VITAMIN B12 [Concomitant]

REACTIONS (6)
  - CAESAREAN SECTION [None]
  - COLITIS [None]
  - CONDITION AGGRAVATED [None]
  - DRUG EXPOSURE DURING PREGNANCY [None]
  - GESTATIONAL DIABETES [None]
  - PREGNANCY [None]
